FAERS Safety Report 5979538-1 (Version None)
Quarter: 2008Q4

REPORT INFORMATION
  Report Type: 
  Country: None (occurrence: None)
  Receive Date: 20081204
  Receipt Date: 20081203
  Transmission Date: 20090506
  Serious: Yes (Death)
  Sender: FDA-Public Use
  Company Number: BR-B.I. PHARMACEUTICALS,INC./RIDGEFIELD-2008-BR-00381BR

PATIENT
  Age: 82 Year
  Sex: Male

DRUGS (3)
  1. SPIRIVA [Suspect]
     Indication: EMPHYSEMA
     Dosage: 18MCG
     Route: 055
     Dates: start: 20080601, end: 20081001
  2. AEROTIDE [Concomitant]
     Indication: EMPHYSEMA
  3. ANTIBIOTIC [Concomitant]

REACTIONS (1)
  - PNEUMONIA [None]
